FAERS Safety Report 6160672-0 (Version None)
Quarter: 2009Q2

REPORT INFORMATION
  Report Type: 
  Country: None (occurrence: None)
  Receive Date: 20090420
  Receipt Date: 20090416
  Transmission Date: 20091009
  Serious: Yes (Hospitalization)
  Sender: FDA-Public Use
  Company Number: DE-WYE-G03522509

PATIENT

DRUGS (2)
  1. TORISEL [Suspect]
     Indication: RENAL CANCER METASTATIC
     Route: 042
  2. FENISTIL [Concomitant]
     Indication: PREMEDICATION
     Dosage: UNKNOWN
     Route: 042

REACTIONS (1)
  - ANGIOEDEMA [None]
